FAERS Safety Report 5475717-0 (Version None)
Quarter: 2007Q4

REPORT INFORMATION
  Report Type: 
  Country: None (occurrence: None)
  Receive Date: 20071001
  Receipt Date: 20071001
  Transmission Date: 20080405
  Serious: Yes (Other)
  Sender: FDA-Public Use
  Company Number: None

PATIENT
  Age: 62 Year
  Sex: Female
  Weight: 71.8 kg

DRUGS (12)
  1. CETUXIMAB [Suspect]
     Indication: BREAST CANCER METASTATIC
     Dosage: 250MG/M2  WEEKLY  IV BOLUS
     Route: 040
     Dates: start: 20070607, end: 20070927
  2. CARBOPLATIN [Suspect]
     Indication: BREAST CANCER METASTATIC
     Dosage: 1.5 AUC  WEEKLY  IV BOLUS
     Route: 040
     Dates: start: 20070607, end: 20070927
  3. COMPAZINE [Concomitant]
  4. MAGNESIUM OXIDE [Concomitant]
  5. PREVACID [Concomitant]
  6. ASACOL [Concomitant]
  7. REQUIP [Concomitant]
  8. VITAMIN B6 [Concomitant]
  9. M.V.I. [Concomitant]
  10. PAXIL [Concomitant]
  11. NEURONTIN [Concomitant]
  12. BUSPIRONE HCL [Concomitant]

REACTIONS (1)
  - PULMONARY EMBOLISM [None]
